FAERS Safety Report 23730552 (Version 2)
Quarter: 2024Q2

REPORT INFORMATION
  Report Type: Spontaneous
  Country: US (occurrence: US)
  Receive Date: 20240411
  Receipt Date: 20240503
  Transmission Date: 20240716
  Serious: Yes (Hospitalization)
  Sender: FDA-Public Use
  Company Number: US-TEVA-VS-3180751

PATIENT
  Age: 81 Year
  Sex: Male

DRUGS (1)
  1. VALPROATE [Suspect]
     Active Substance: VALPROIC ACID
     Indication: Bipolar disorder
     Route: 065

REACTIONS (6)
  - Fanconi syndrome [Recovering/Resolving]
  - Hyperphosphataemia [Recovered/Resolved]
  - Hypovolaemia [Unknown]
  - Acute kidney injury [Unknown]
  - Metabolic acidosis [Recovering/Resolving]
  - Rhabdomyolysis [Recovering/Resolving]
